FAERS Safety Report 18307914 (Version 2)
Quarter: 2020Q3

REPORT INFORMATION
  Report Type: Spontaneous
  Country: US (occurrence: US)
  Receive Date: 20200924
  Receipt Date: 20200924
  Transmission Date: 20201103
  Serious: No
  Sender: FDA-Public Use
  Company Number: US-PFIZER INC-2020366646

PATIENT
  Age: 72 Year
  Sex: Male
  Weight: 110.22 kg

DRUGS (1)
  1. LORBRENA [Suspect]
     Active Substance: LORLATINIB
     Indication: LUNG CARCINOMA CELL TYPE UNSPECIFIED STAGE IV
     Dosage: 100 MG, 1X/DAY(1 CAPLET BY MOUTH ONCE DAILY)
     Route: 048
     Dates: start: 202008

REACTIONS (1)
  - Weight increased [Not Recovered/Not Resolved]
